FAERS Safety Report 5363434-7 (Version None)
Quarter: 2007Q2

REPORT INFORMATION
  Report Type: 
  Country: None (occurrence: None)
  Receive Date: 20070618
  Receipt Date: 20070604
  Transmission Date: 20071010
  Serious: Yes (Hospitalization)
  Sender: FDA-Public Use
  Company Number: FSC_00117_2007

PATIENT
  Sex: Female

DRUGS (1)
  1. ISOPTIN [Suspect]
     Dosage: ORAL
     Route: 048
     Dates: start: 20070601

REACTIONS (1)
  - SUICIDE ATTEMPT [None]
